FAERS Safety Report 9914706 (Version 2)
Quarter: 2014Q1

REPORT INFORMATION
  Report Type: Spontaneous
  Country: US (occurrence: US)
  Receive Date: 20140220
  Receipt Date: 20140325
  Transmission Date: 20141002
  Serious: Yes (Death)
  Sender: FDA-Public Use
  Company Number: US-INCYTE CORPORATION-2014IN000419

PATIENT
  Sex: Female

DRUGS (1)
  1. JAKAFI [Suspect]
     Dosage: 15 MG, BID
     Route: 048

REACTIONS (1)
  - Gastrointestinal haemorrhage [Fatal]
